FAERS Safety Report 22195242 (Version 1)
Quarter: 2023Q2

REPORT INFORMATION
  Report Type: Spontaneous
  Country: US (occurrence: US)
  Receive Date: 20230411
  Receipt Date: 20230411
  Transmission Date: 20230721
  Serious: No
  Sender: FDA-Public Use
  Company Number: US-002147023-NVSC2023US082588

PATIENT
  Sex: Female

DRUGS (1)
  1. PREDNISOLONE ACETATE [Suspect]
     Active Substance: PREDNISOLONE ACETATE
     Indication: Product used for unknown indication
     Dosage: 4 DRP, QD (5ML LDP US)
     Route: 065
     Dates: start: 20230223, end: 20230328

REACTIONS (3)
  - Eye discharge [Unknown]
  - Liquid product physical issue [Unknown]
  - Product container issue [Unknown]
